FAERS Safety Report 10467684 (Version 1)
Quarter: 2014Q3

REPORT INFORMATION
  Report Type: Spontaneous
  Country: JP (occurrence: JP)
  Receive Date: 20140922
  Receipt Date: 20140922
  Transmission Date: 20150326
  Serious: Yes (Other)
  Sender: FDA-Public Use
  Company Number: JP-VIIV HEALTHCARE LIMITED-B1035061A

PATIENT
  Age: 64 Year
  Sex: Male

DRUGS (4)
  1. RALTEGRAVIR POTASSIUM [Concomitant]
     Active Substance: RALTEGRAVIR POTASSIUM
     Indication: HIV INFECTION
     Route: 048
     Dates: start: 201003
  2. DOPA-DECARBOXYLASE INHIBITOR [Concomitant]
     Dates: start: 201209
  3. EPZICOM [Suspect]
     Active Substance: ABACAVIR SULFATE\LAMIVUDINE
     Indication: HIV INFECTION
     Route: 048
     Dates: start: 201212
  4. DOPAMINERGIC AGONIST [Concomitant]
     Dates: start: 201209

REACTIONS (16)
  - Hypotonic urinary bladder [Unknown]
  - Cerebellar ataxia [Unknown]
  - Ataxia [Unknown]
  - Mental impairment [Unknown]
  - Multiple system atrophy [Unknown]
  - AIDS dementia complex [Unknown]
  - Dysuria [Unknown]
  - Nystagmus [Unknown]
  - Cerebellar atrophy [Unknown]
  - Asterixis [Unknown]
  - Gait disturbance [Unknown]
  - Cerebral hypoperfusion [Unknown]
  - Memory impairment [Unknown]
  - Orthostatic hypotension [Unknown]
  - Muscle rigidity [Unknown]
  - Postural reflex impairment [Unknown]
